FAERS Safety Report 26012249 (Version 1)
Quarter: 2025Q4

REPORT INFORMATION
  Report Type: Spontaneous
  Country: EU (occurrence: EU)
  Receive Date: 20251107
  Receipt Date: 20251107
  Transmission Date: 20260118
  Serious: Yes (Hospitalization)
  Sender: ALEXION PHARMACEUTICALS
  Company Number: None

PATIENT
  Age: 79 Year
  Sex: Male
  Weight: 75 kg

DRUGS (1)
  1. IMFINZI [Suspect]
     Active Substance: DURVALUMAB
     Indication: Lung adenocarcinoma
     Dosage: 1500MGX1/MOIS15 CYCLES
     Dates: start: 2024, end: 202506

REACTIONS (1)
  - Pustular psoriasis [Not Recovered/Not Resolved]

NARRATIVE: CASE EVENT DATE: 20250901
